FAERS Safety Report 4824252-9 (Version None)
Quarter: 2005Q4

REPORT INFORMATION
  Report Type: 
  Country: None (occurrence: None)
  Receive Date: 20051108
  Receipt Date: 20051026
  Transmission Date: 20060501
  Serious: Yes (Other)
  Sender: FDA-Public Use
  Company Number: 2005148852

PATIENT
  Sex: Male
  Weight: 90.7194 kg

DRUGS (8)
  1. PROCARDIA [Suspect]
     Indication: HYPERTENSION
     Dosage: 90 MG (90 MG, DAILY INTERVAL:  EVERY DAY)
     Dates: end: 20041205
  2. PROGRAF [Concomitant]
  3. BACTRIM [Concomitant]
  4. LOPRESSOR [Concomitant]
  5. VALCYTE [Concomitant]
  6. HUMULIN R [Concomitant]
  7. HUMULIN N [Concomitant]
  8. PREDNISONE [Concomitant]

REACTIONS (3)
  - DIALYSIS [None]
  - RENAL FAILURE [None]
  - RENAL TRANSPLANT [None]
